FAERS Safety Report 25600680 (Version 1)
Quarter: 2025Q3

REPORT INFORMATION
  Report Type: Spontaneous
  Country: US (occurrence: None)
  Receive Date: 20250724
  Receipt Date: 20250724
  Transmission Date: 20251021
  Serious: Yes (Hospitalization)
  Sender: FDA-CTU
  Company Number: None

PATIENT
  Age: 59 Year
  Sex: Male
  Weight: 72 kg

DRUGS (1)
  1. CARBOPLATIN [Suspect]
     Active Substance: CARBOPLATIN
     Dates: end: 20250605

REACTIONS (3)
  - Mouth haemorrhage [None]
  - Endotracheal intubation complication [None]
  - Procedural haemorrhage [None]

NARRATIVE: CASE EVENT DATE: 20250713
